FAERS Safety Report 9639996 (Version 4)
Quarter: 2014Q2

REPORT INFORMATION
  Report Type: Spontaneous
  Country: JP (occurrence: JP)
  Receive Date: 20131023
  Receipt Date: 20140512
  Transmission Date: 20141212
  Serious: Yes (Hospitalization)
  Sender: FDA-Public Use
  Company Number: PHHY2013JP118204

PATIENT
  Age: 52 Year
  Sex: Female

DRUGS (3)
  1. CICLOSPORIN [Suspect]
     Indication: IMMUNOSUPPRESSION
     Dosage: 75 MG, DAILY
     Route: 048
  2. BETAMETHASONE [Concomitant]
     Indication: IMMUNOSUPPRESSION
     Route: 048
  3. RINDERON [Concomitant]
     Dosage: 1 MG, UNK
     Route: 048

REACTIONS (2)
  - Interstitial lung disease [Unknown]
  - Bronchopulmonary aspergillosis [Unknown]
